FAERS Safety Report 18232289 (Version 1)
Quarter: 2020Q3

REPORT INFORMATION
  Report Type: Spontaneous
  Country: US (occurrence: US)
  Receive Date: 20200904
  Receipt Date: 20200904
  Transmission Date: 20201103
  Serious: Yes (Other)
  Sender: FDA-Public Use
  Company Number: None

PATIENT
  Age: 57 Year
  Sex: Male
  Weight: 65.25 kg

DRUGS (1)
  1. PRIALT [Suspect]
     Active Substance: ZICONOTIDE ACETATE
     Indication: PAIN
     Dosage: ?          OTHER ROUTE:INTRATHECAL DRUG PUMP?

REACTIONS (1)
  - Urticaria [None]

NARRATIVE: CASE EVENT DATE: 20200130
